FAERS Safety Report 6981694-3 (Version None)
Quarter: 2010Q3

REPORT INFORMATION
  Report Type: 
  Country: None (occurrence: None)
  Receive Date: 20100914
  Receipt Date: 20090928
  Transmission Date: 20110219
  Serious: Yes (Hospitalization)
  Sender: FDA-Public Use
  Company Number: US-PFIZER INC-2009266977

PATIENT
  Sex: Female

DRUGS (1)
  1. LYRICA [Suspect]
     Dosage: 300 MG, 1X/DAY
     Dates: end: 20090801

REACTIONS (3)
  - DEPRESSION SUICIDAL [None]
  - MANIA [None]
  - PARANOIA [None]
